FAERS Safety Report 13394270 (Version 1)
Quarter: 2017Q2

REPORT INFORMATION
  Report Type: Report from Study
  Country: CN (occurrence: CN)
  Receive Date: 20170402
  Receipt Date: 20170402
  Transmission Date: 20170830
  Serious: Yes (Other)
  Sender: FDA-Public Use
  Company Number: CN-MYLANLABS-2017M1020120

PATIENT

DRUGS (2)
  1. PREDNISONE. [Suspect]
     Active Substance: PREDNISONE
     Indication: IMMUNOSUPPRESSANT DRUG THERAPY
     Dosage: 1 MG/KG PER DAY FOR ONE MONTH. LATER, THE DOSE WAS GRADUALLY TAPERED TO A MAINTENANCE DOSE
     Route: 048
  2. CYCLOPHOSPHAMIDE. [Suspect]
     Active Substance: CYCLOPHOSPHAMIDE
     Indication: IMMUNOSUPPRESSANT DRUG THERAPY
     Dosage: WEEKLY PULSE OF 1G, THEN 100MG/DAY
     Route: 065

REACTIONS (3)
  - Endocarditis [Unknown]
  - Device malfunction [Unknown]
  - Device leakage [Unknown]
